FAERS Safety Report 10823015 (Version 1)
Quarter: 2015Q1

REPORT INFORMATION
  Report Type: Report from Study
  Country: US (occurrence: US)
  Receive Date: 20150218
  Receipt Date: 20150218
  Transmission Date: 20150721
  Serious: No
  Sender: FDA-Public Use
  Company Number: US-ABBVIE-14K-163-1307961-00

PATIENT
  Age: 27 Year
  Sex: Male

DRUGS (2)
  1. BENADRYL [Suspect]
     Active Substance: DIPHENHYDRAMINE HYDROCHLORIDE
     Indication: PRODUCT USED FOR UNKNOWN INDICATION
     Route: 065
  2. HUMIRA [Suspect]
     Active Substance: ADALIMUMAB
     Indication: CROHN^S DISEASE
     Route: 065
     Dates: start: 201408

REACTIONS (13)
  - Purulent discharge [Not Recovered/Not Resolved]
  - Skin ulcer [Not Recovered/Not Resolved]
  - Hypersensitivity [Not Recovered/Not Resolved]
  - Swelling face [Not Recovered/Not Resolved]
  - Ulcer haemorrhage [Not Recovered/Not Resolved]
  - Dyspnoea [Not Recovered/Not Resolved]
  - Headache [Not Recovered/Not Resolved]
  - Skin ulcer [Unknown]
  - Blister [Not Recovered/Not Resolved]
  - Urticaria [Not Recovered/Not Resolved]
  - Rash [Not Recovered/Not Resolved]
  - Acne [Not Recovered/Not Resolved]
  - Drug ineffective [Unknown]

NARRATIVE: CASE EVENT DATE: 2014
